FAERS Safety Report 21172653 (Version 6)
Quarter: 2024Q1

REPORT INFORMATION
  Report Type: Spontaneous
  Country: US (occurrence: US)
  Receive Date: 20220804
  Receipt Date: 20240125
  Transmission Date: 20240409
  Serious: No
  Sender: FDA-Public Use
  Company Number: US-PFIZER INC-PV202200036741

PATIENT
  Age: 68 Year
  Sex: Female

DRUGS (1)
  1. IBRANCE [Suspect]
     Active Substance: PALBOCICLIB
     Indication: Breast cancer
     Dosage: EVERY DAY FOR 21 DAYS THEN 7 DAYS OFF
     Route: 048

REACTIONS (6)
  - Malaise [Unknown]
  - Chest discomfort [Unknown]
  - Respiratory disorder [Unknown]
  - Dizziness [Unknown]
  - Neck pain [Unknown]
  - Stress [Unknown]

NARRATIVE: CASE EVENT DATE: 20221220
